FAERS Safety Report 8579726-4 (Version None)
Quarter: 2012Q3

REPORT INFORMATION
  Report Type: 
  Country: None (occurrence: None)
  Receive Date: 20120808
  Receipt Date: 20120730
  Transmission Date: 20120928
  Serious: Yes (Death, Hospitalization, Other)
  Sender: FDA-Public Use
  Company Number: US-ACTELION-A-US2012-67271

PATIENT
  Age: 75 Year
  Sex: Male

DRUGS (11)
  1. ASPIRIN [Concomitant]
  2. EDECRIN [Concomitant]
  3. LANOXIN [Concomitant]
  4. PLAVIX [Concomitant]
  5. REVATIO [Concomitant]
  6. TRACLEER [Suspect]
     Indication: PULMONARY ARTERIAL HYPERTENSION
     Dosage: UNK
     Route: 048
     Dates: start: 20120402
  7. COREG [Concomitant]
  8. VYTORIN [Concomitant]
  9. SYNTHROID [Concomitant]
  10. AVODART [Concomitant]
  11. COZAAR [Concomitant]

REACTIONS (9)
  - PALPITATIONS [None]
  - GAIT DISTURBANCE [None]
  - DYSPNOEA [None]
  - DEATH [None]
  - LOSS OF CONSCIOUSNESS [None]
  - MALAISE [None]
  - TACHYCARDIA [None]
  - CONDITION AGGRAVATED [None]
  - DIZZINESS [None]
